FAERS Safety Report 15695543 (Version 1)
Quarter: 2018Q4

REPORT INFORMATION
  Report Type: Spontaneous
  Country: US (occurrence: US)
  Receive Date: 20181126
  Receipt Date: 20181126
  Transmission Date: 20190205
  Serious: Yes (Hospitalization, Disabling)
  Sender: FDA-Public Use
  Company Number: None

PATIENT
  Age: 29 Year
  Sex: Female
  Weight: 74.25 kg

DRUGS (2)
  1. PRENATAL [Concomitant]
     Active Substance: VITAMINS
  2. GILENYA [Suspect]
     Active Substance: FINGOLIMOD HYDROCHLORIDE
     Indication: MULTIPLE SCLEROSIS

REACTIONS (9)
  - Vertigo [None]
  - Discomfort [None]
  - Pregnancy [None]
  - Balance disorder [None]
  - Visual impairment [None]
  - Hypoaesthesia [None]
  - Exposure during pregnancy [None]
  - Disease recurrence [None]
  - Gait disturbance [None]

NARRATIVE: CASE EVENT DATE: 20180217
